FAERS Safety Report 4433983-4 (Version None)
Quarter: 2004Q3

REPORT INFORMATION
  Report Type: 
  Country: None (occurrence: None)
  Receive Date: 20040825
  Receipt Date: 20040806
  Transmission Date: 20050211
  Serious: Yes (Death, Hospitalization)
  Sender: FDA-Public Use
  Company Number: US_0408104686

PATIENT
  Age: 48 Year
  Sex: Male

DRUGS (1)
  1. XIGRIS [Suspect]
     Indication: ORGAN FAILURE
     Dosage: UNK
     Route: 065

REACTIONS (4)
  - HAEMODYNAMIC INSTABILITY [None]
  - HAEMORRHAGE [None]
  - MEDICATION ERROR [None]
  - RHABDOMYOLYSIS [None]
